FAERS Safety Report 14041092 (Version 1)
Quarter: 2017Q4

REPORT INFORMATION
  Report Type: Spontaneous
  Country: US (occurrence: US)
  Receive Date: 20171004
  Receipt Date: 20171004
  Transmission Date: 20180321
  Serious: Yes (Other)
  Sender: FDA-Public Use
  Company Number: US-AMGEN-USASP2017139741

PATIENT
  Age: 64 Year
  Sex: Female

DRUGS (1)
  1. PROLIA [Suspect]
     Active Substance: DENOSUMAB
     Indication: PRODUCT USED FOR UNKNOWN INDICATION
     Dosage: UNK
     Route: 065
     Dates: start: 201609

REACTIONS (8)
  - Arthritis [Unknown]
  - Arthralgia [Not Recovered/Not Resolved]
  - Intervertebral disc compression [Unknown]
  - Rash [Unknown]
  - Cellulitis [Unknown]
  - Middle ear effusion [Recovering/Resolving]
  - Musculoskeletal pain [Recovered/Resolved]
  - Groin pain [Unknown]

NARRATIVE: CASE EVENT DATE: 2017
